FAERS Safety Report 8902172 (Version 1)
Quarter: 2012Q4

REPORT INFORMATION
  Report Type: Report from Study
  Country: CA (occurrence: CA)
  Receive Date: 20121112
  Receipt Date: 20121112
  Transmission Date: 20130627
  Serious: Yes (Hospitalization)
  Sender: FDA-Public Use
  Company Number: CA-JNJFOC-20121101128

PATIENT
  Sex: Male
  Weight: 67.59 kg

DRUGS (1)
  1. REMICADE [Suspect]
     Indication: COLITIS ULCERATIVE
     Dosage: 2 loading doses
     Route: 042
     Dates: start: 201111, end: 201112

REACTIONS (3)
  - Appendicitis [Unknown]
  - White blood cell count decreased [Unknown]
  - Crohn^s disease [Unknown]
